FAERS Safety Report 21415270 (Version 2)
Quarter: 2022Q4

REPORT INFORMATION
  Report Type: Report from Study
  Country: US (occurrence: US)
  Receive Date: 20221006
  Receipt Date: 20221204
  Transmission Date: 20230113
  Serious: Yes (Other)
  Sender: FDA-Public Use
  Company Number: US-ABBVIE-4140076

PATIENT
  Sex: Male

DRUGS (4)
  1. HUMIRA [Suspect]
     Active Substance: ADALIMUMAB
     Indication: Rheumatoid arthritis
     Route: 058
  2. PFIZER-BIONTECH COVID-19 VACCINE [Concomitant]
     Active Substance: TOZINAMERAN
     Indication: COVID-19 immunisation
     Dosage: 1ST DOSE; FREQUENCY: ONE TIME ONCE
     Route: 030
     Dates: start: 20210220, end: 20210220
  3. PFIZER-BIONTECH COVID-19 VACCINE [Concomitant]
     Active Substance: TOZINAMERAN
     Indication: COVID-19 immunisation
     Dosage: 2ND DOSE; FREQUENCY: ONE TIME ONCE
     Route: 030
     Dates: start: 20210320, end: 20210320
  4. PFIZER-BIONTECH COVID-19 VACCINE [Concomitant]
     Active Substance: TOZINAMERAN
     Indication: COVID-19 immunisation
     Dosage: 3RD DOSE/BOOSTER DOSE; FREQUENCY: ONE TIME ONCE
     Route: 030
     Dates: start: 20211210, end: 20211210

REACTIONS (5)
  - Prostate cancer [Recovering/Resolving]
  - Musculoskeletal stiffness [Not Recovered/Not Resolved]
  - Pain in extremity [Recovering/Resolving]
  - Back pain [Recovering/Resolving]
  - Pain [Not Recovered/Not Resolved]
